FAERS Safety Report 22208358 (Version 3)
Quarter: 2025Q2

REPORT INFORMATION
  Report Type: Spontaneous
  Country: US (occurrence: None)
  Receive Date: 20230413
  Receipt Date: 20250509
  Transmission Date: 20250717
  Serious: No
  Sender: INCYTE
  Company Number: US-INCYTE CORPORATION-2023IN003576

PATIENT

DRUGS (1)
  1. JAKAFI [Suspect]
     Active Substance: RUXOLITINIB
     Indication: Polycythaemia vera
     Dosage: 10 MILLIGRAM, BID

REACTIONS (7)
  - Palmar-plantar erythrodysaesthesia syndrome [Unknown]
  - Decreased activity [Unknown]
  - Dysphagia [Unknown]
  - Pain [Unknown]
  - Fatigue [Unknown]
  - Asthenia [Unknown]
  - Nausea [Unknown]
